FAERS Safety Report 8474565-7 (Version None)
Quarter: 2012Q2

REPORT INFORMATION
  Report Type: 
  Country: None (occurrence: None)
  Receive Date: 20120628
  Receipt Date: 20120620
  Transmission Date: 20120825
  Serious: Yes (Hospitalization)
  Sender: FDA-Public Use
  Company Number: US-BAYER-2012-062522

PATIENT
  Age: 42 Year
  Sex: Female

DRUGS (9)
  1. ALBUTEROL [Concomitant]
  2. NAPROXEN [Concomitant]
     Dosage: 500 MG, UNK
  3. FLEXERIL [Concomitant]
  4. DROSPIRENONE AND ETHINYL ESTRADIOL [Suspect]
  5. YAZ [Suspect]
  6. OMEPRAZOLE [Concomitant]
     Dosage: 20 MG, UNK
  7. PRILOSEC [Concomitant]
  8. PROVENTIL-HFA [Concomitant]
     Dosage: 90 ?G, UNK
     Route: 055
  9. CYCLOBENZAPRINE [Concomitant]
     Dosage: 10 MG, UNK

REACTIONS (4)
  - HAEMOPTYSIS [None]
  - PLEURISY [None]
  - BRONCHITIS [None]
  - PULMONARY EMBOLISM [None]
